FAERS Safety Report 9527051 (Version 2)
Quarter: 2017Q1

REPORT INFORMATION
  Report Type: Report from Study
  Country: DE (occurrence: DE)
  Receive Date: 20130916
  Receipt Date: 20170327
  Transmission Date: 20170429
  Serious: Yes (Other)
  Sender: FDA-Public Use
  Company Number: DE-ROCHE-1275502

PATIENT

DRUGS (1)
  1. SOMATROPIN [Suspect]
     Active Substance: SOMATROPIN
     Indication: GENE MUTATION
     Route: 058

REACTIONS (3)
  - Bone development abnormal [Unknown]
  - Scoliosis [Unknown]
  - Benign neoplasm [Unknown]
